FAERS Safety Report 4479558-2 (Version None)
Quarter: 2004Q4

REPORT INFORMATION
  Report Type: 
  Country: None (occurrence: None)
  Receive Date: 20041015
  Receipt Date: 20041008
  Transmission Date: 20050328
  Serious: No
  Sender: FDA-Public Use
  Company Number: 2004UW14772

PATIENT
  Age: 80 Year
  Sex: Male
  Weight: 102.0593 kg

DRUGS (5)
  1. CASODEX [Suspect]
     Indication: PROSTATE CANCER
     Dosage: 50 MG DAILY PO
     Route: 048
     Dates: start: 20040401, end: 20040101
  2. CASODEX [Suspect]
     Indication: PROSTATE CANCER
     Dates: start: 20040101
  3. RESPIRATORY TREATMENT [Suspect]
  4. INSULIN [Concomitant]
  5. ZOLADEX [Concomitant]

REACTIONS (5)
  - BLOOD GLUCOSE FLUCTUATION [None]
  - CONSTIPATION [None]
  - DIZZINESS [None]
  - FALL [None]
  - LOSS OF CONSCIOUSNESS [None]
